FAERS Safety Report 7963649-5 (Version None)
Quarter: 2011Q4

REPORT INFORMATION
  Report Type: 
  Country: None (occurrence: None)
  Receive Date: 20111208
  Receipt Date: 20111110
  Transmission Date: 20120403
  Serious: No
  Sender: FDA-Public Use
  Company Number: US-BAYER-2011-109731

PATIENT
  Age: 84 Year
  Sex: Female
  Weight: 82 kg

DRUGS (2)
  1. ALEVE (CAPLET) [Suspect]
     Dosage: 1 U, BID
     Route: 048
     Dates: start: 20110601, end: 20111109
  2. LISINOPRIL [Concomitant]

REACTIONS (3)
  - PRURITUS [None]
  - NAUSEA [None]
  - DYSPEPSIA [None]
